FAERS Safety Report 12109278 (Version 1)
Quarter: 2016Q1

REPORT INFORMATION
  Report Type: Spontaneous
  Country: US (occurrence: None)
  Receive Date: 20160223
  Receipt Date: 20160223
  Transmission Date: 20160526
  Serious: Yes (Death)
  Sender: FDA-Public Use
  Company Number: None

PATIENT
  Age: 63 Year
  Sex: Male
  Weight: 67.3 kg

DRUGS (1)
  1. ZYTIGA [Suspect]
     Active Substance: ABIRATERONE ACETATE
     Indication: PROSTATE CANCER
     Dosage: DATE OF USE GIVEN 07/16/2016 TO 01/04/2016
     Route: 048
     Dates: end: 20160104

REACTIONS (1)
  - Death [None]

NARRATIVE: CASE EVENT DATE: 20160107
